FAERS Safety Report 16388433 (Version 5)
Quarter: 2020Q1

REPORT INFORMATION
  Report Type: Spontaneous
  Country: US (occurrence: US)
  Receive Date: 20190604
  Receipt Date: 20200106
  Transmission Date: 20200409
  Serious: No
  Sender: FDA-Public Use
  Company Number: US-PFIZER INC-2019236544

PATIENT
  Age: 58 Year
  Sex: Female

DRUGS (1)
  1. XELJANZ XR [Suspect]
     Active Substance: TOFACITINIB CITRATE
     Dosage: 11 MG, 1X/DAY
     Route: 048

REACTIONS (10)
  - Upper respiratory tract infection [Unknown]
  - Back pain [Unknown]
  - Influenza [Unknown]
  - Pyrexia [Unknown]
  - Condition aggravated [Unknown]
  - Joint swelling [Unknown]
  - Malaise [Unknown]
  - Nasopharyngitis [Unknown]
  - Chills [Unknown]
  - Arthralgia [Unknown]
